FAERS Safety Report 5227171-1 (Version None)
Quarter: 2007Q1

REPORT INFORMATION
  Report Type: 
  Country: None (occurrence: None)
  Receive Date: 20070202
  Receipt Date: 20070124
  Transmission Date: 20070707
  Serious: Yes (Other)
  Sender: FDA-Public Use
  Company Number: 200710341EU

PATIENT
  Age: 42 Year
  Sex: Female

DRUGS (3)
  1. NICORETTE [Suspect]
     Dosage: 90GUM ALTERNATE DAYS
     Route: 002
  2. EFFEXOR [Concomitant]
     Route: 065
  3. MEPRONIZINE [Concomitant]
     Route: 065

REACTIONS (3)
  - DRUG DEPENDENCE [None]
  - INCORRECT DRUG ADMINISTRATION DURATION [None]
  - OVERDOSE [None]
